FAERS Safety Report 24685108 (Version 2)
Quarter: 2025Q1

REPORT INFORMATION
  Report Type: Report from Study
  Country: US (occurrence: US)
  Receive Date: 20241202
  Receipt Date: 20250110
  Transmission Date: 20250408
  Serious: Yes (Death, Other)
  Sender: ACADIA PHARMACEUTICALS
  Company Number: US-ACADIA PHARMACEUTICALS INC.-ACA-2024-PIM-007679

PATIENT
  Age: 69 Year
  Sex: Female

DRUGS (18)
  1. NUPLAZID [Suspect]
     Active Substance: PIMAVANSERIN TARTRATE
     Indication: Parkinson^s disease
     Dosage: 34 MILLIGRAM, QD
     Route: 048
     Dates: start: 20200518, end: 202412
  2. TRAZODONE [Suspect]
     Active Substance: TRAZODONE HYDROCHLORIDE
  3. SULFAMETHOXAZOLE\TRIMETHOPRIM [Concomitant]
     Active Substance: SULFAMETHOXAZOLE\TRIMETHOPRIM
  4. IBUPROFEN [Concomitant]
     Active Substance: IBUPROFEN
  5. TRAZODONE [Concomitant]
     Active Substance: TRAZODONE HYDROCHLORIDE
  6. LORAZEPAM [Concomitant]
     Active Substance: LORAZEPAM
  7. QUETIAPINE [Concomitant]
     Active Substance: QUETIAPINE
  8. APAP [Concomitant]
     Active Substance: ACETAMINOPHEN
  9. VENLAFAXINE [Concomitant]
     Active Substance: VENLAFAXINE HYDROCHLORIDE
  10. JARDIANCE [Concomitant]
     Active Substance: EMPAGLIFLOZIN
  11. NYSTATIN [Concomitant]
     Active Substance: NYSTATIN
  12. GABAPENTIN [Concomitant]
     Active Substance: GABAPENTIN
  13. RISPERIDONE [Concomitant]
     Active Substance: RISPERIDONE
  14. DONEPEZIL [Concomitant]
     Active Substance: DONEPEZIL
  15. RYTARY [Concomitant]
     Active Substance: CARBIDOPA\LEVODOPA
  16. ATROPINE [Concomitant]
     Active Substance: ATROPINE
  17. MORPHINE SULFATE [Concomitant]
     Active Substance: MORPHINE SULFATE
  18. DULCOLAX (BISACODYL) [Concomitant]
     Active Substance: BISACODYL

REACTIONS (5)
  - Parkinson^s disease [Recovered/Resolved]
  - Dementia [Not Recovered/Not Resolved]
  - Hallucination [Not Recovered/Not Resolved]
  - Condition aggravated [Not Recovered/Not Resolved]
  - Dizziness [Not Recovered/Not Resolved]

NARRATIVE: CASE EVENT DATE: 20241121
